FAERS Safety Report 7065873-5 (Version None)
Quarter: 2010Q4

REPORT INFORMATION
  Report Type: 
  Country: None (occurrence: None)
  Receive Date: 20101027
  Receipt Date: 20101014
  Transmission Date: 20110411
  Serious: Yes (Hospitalization, Other)
  Sender: FDA-Public Use
  Company Number: US-AMGEN AB-QUU443802

PATIENT

DRUGS (5)
  1. NPLATE [Suspect]
     Indication: IDIOPATHIC THROMBOCYTOPENIC PURPURA
     Dosage: 54 UNK, UNK
     Dates: start: 20091029, end: 20100513
  2. NPLATE [Suspect]
     Dates: start: 20091029, end: 20100506
  3. BORTEZOMIB [Concomitant]
  4. VIDAZA [Concomitant]
  5. AMICAR [Concomitant]

REACTIONS (5)
  - ANORECTAL CELLULITIS [None]
  - DRUG INEFFECTIVE [None]
  - HAEMORRHAGE [None]
  - MYELODYSPLASTIC SYNDROME [None]
  - SINUS HEADACHE [None]
